FAERS Safety Report 9064036 (Version 17)
Quarter: 2019Q1

REPORT INFORMATION
  Report Type: Report from Study
  Country: CA (occurrence: CA)
  Receive Date: 20130213
  Receipt Date: 20190315
  Transmission Date: 20190418
  Serious: Yes (Other)
  Sender: FDA-Public Use
  Company Number: CA-ROCHE-1190121

PATIENT
  Age: 40 Year
  Sex: Female
  Weight: 110 kg

DRUGS (27)
  1. NORMAL SALINE [Concomitant]
     Active Substance: SODIUM CHLORIDE
     Route: 040
  2. RITUXAN [Suspect]
     Active Substance: RITUXIMAB
     Route: 042
     Dates: start: 20130423
  3. CLONAZEPAM. [Concomitant]
     Active Substance: CLONAZEPAM
  4. AZITHROMYCIN ANHYDROUS. [Concomitant]
     Active Substance: AZITHROMYCIN ANHYDROUS
  5. FENTANYL. [Concomitant]
     Active Substance: FENTANYL
     Route: 042
  6. RITUXAN [Suspect]
     Active Substance: RITUXIMAB
     Route: 042
     Dates: start: 20151116
  7. BENADRYL [Suspect]
     Active Substance: DIPHENHYDRAMINE HYDROCHLORIDE
     Indication: PRODUCT USED FOR UNKNOWN INDICATION
     Route: 065
  8. LEUCOVORIN. [Concomitant]
     Active Substance: LEUCOVORIN
  9. MORPHINE [Concomitant]
     Active Substance: MORPHINE
     Indication: PAIN
     Dosage: 10 TO  20 MG
     Route: 048
  10. FENTANYL. [Concomitant]
     Active Substance: FENTANYL
     Indication: SEDATION
     Route: 042
  11. IMURAN [Concomitant]
     Active Substance: AZATHIOPRINE
     Route: 065
  12. RITUXAN [Suspect]
     Active Substance: RITUXIMAB
     Indication: GRANULOMATOSIS WITH POLYANGIITIS
     Dosage: THE LAST DOSE OF RITUXIMAB ADMINISTERED ON 02/JUL/2014.
     Route: 042
     Dates: start: 20120522
  13. RITUXAN [Suspect]
     Active Substance: RITUXIMAB
     Route: 042
     Dates: start: 20141223
  14. METHYLPREDNISOLONE. [Concomitant]
     Active Substance: METHYLPREDNISOLONE
     Indication: PREMEDICATION
     Route: 042
     Dates: start: 20120522
  15. IMURAN [Concomitant]
     Active Substance: AZATHIOPRINE
     Route: 065
  16. TALWIN [Concomitant]
     Active Substance: PENTAZOCINE LACTATE
  17. ZOPICLONE [Concomitant]
     Active Substance: ZOPICLONE
     Dosage: 7.5 MG TO 15 MG
     Route: 048
     Dates: start: 2012
  18. ACETAMINOPHEN. [Concomitant]
     Active Substance: ACETAMINOPHEN
     Indication: PREMEDICATION
     Route: 048
     Dates: start: 20120522
  19. ATIVAN [Concomitant]
     Active Substance: LORAZEPAM
     Indication: PANIC DISORDER
     Dosage: 1-3 MG?1-3 TABLETS
     Route: 048
     Dates: start: 20120207
  20. PREDNISONE. [Concomitant]
     Active Substance: PREDNISONE
     Dosage: 25-30 MG PER DAY
     Route: 065
  21. NICOTINE GUM [Concomitant]
     Active Substance: NICOTINE
     Route: 065
  22. RITUXAN [Suspect]
     Active Substance: RITUXIMAB
     Route: 042
     Dates: start: 20151214
  23. AZATHIOPRINE. [Suspect]
     Active Substance: AZATHIOPRINE
     Indication: PRODUCT USED FOR UNKNOWN INDICATION
     Route: 065
     Dates: start: 2014
  24. METHOTREXATE. [Concomitant]
     Active Substance: METHOTREXATE
     Route: 048
     Dates: end: 201212
  25. FENTANYL. [Concomitant]
     Active Substance: FENTANYL
     Indication: SEDATION
     Route: 042
  26. MORPHINE [Concomitant]
     Active Substance: MORPHINE
     Route: 065
  27. DIPHENHYDRAMINE HCL [Concomitant]
     Active Substance: DIPHENHYDRAMINE HYDROCHLORIDE
     Indication: PREMEDICATION
     Route: 048
     Dates: start: 20120522

REACTIONS (75)
  - Escherichia infection [Recovered/Resolved]
  - Pain [Unknown]
  - Back pain [Unknown]
  - White blood cell count increased [Unknown]
  - Blood pressure increased [Unknown]
  - Restlessness [Unknown]
  - Incorrect drug administration rate [Unknown]
  - Malaise [Unknown]
  - Insomnia [Not Recovered/Not Resolved]
  - Paraesthesia [Not Recovered/Not Resolved]
  - Nasopharyngitis [Not Recovered/Not Resolved]
  - Nausea [Not Recovered/Not Resolved]
  - Red blood cells urine positive [Unknown]
  - Blood pressure fluctuation [Recovered/Resolved]
  - Pain in extremity [Unknown]
  - Back injury [Recovering/Resolving]
  - Feeding disorder [Not Recovered/Not Resolved]
  - Lethargy [Not Recovered/Not Resolved]
  - Ear discomfort [Not Recovered/Not Resolved]
  - Vertigo [Not Recovered/Not Resolved]
  - Colitis [Recovered/Resolved]
  - Panic attack [Not Recovered/Not Resolved]
  - Lacrimation increased [Unknown]
  - Feeling hot [Unknown]
  - Body temperature increased [Unknown]
  - Headache [Not Recovered/Not Resolved]
  - Nasal congestion [Unknown]
  - Chest discomfort [Recovering/Resolving]
  - Injection site pain [Unknown]
  - Myalgia [Unknown]
  - Blood pressure systolic increased [Not Recovered/Not Resolved]
  - Blood pressure systolic abnormal [Unknown]
  - Conjunctivitis viral [Recovered/Resolved]
  - Sleep apnoea syndrome [Unknown]
  - Arthralgia [Unknown]
  - Weight increased [Not Recovered/Not Resolved]
  - Somnolence [Unknown]
  - Injection site irritation [Unknown]
  - Neutrophil count increased [Unknown]
  - Restless legs syndrome [Recovered/Resolved]
  - Cough [Not Recovered/Not Resolved]
  - Blood pressure diastolic increased [Unknown]
  - Glaucoma [Unknown]
  - Scleritis [Unknown]
  - Anxiety [Unknown]
  - Stress [Unknown]
  - Monocyte count increased [Unknown]
  - Nasal congestion [Unknown]
  - Skin infection [Recovered/Resolved]
  - Influenza [Not Recovered/Not Resolved]
  - Hyperhidrosis [Not Recovered/Not Resolved]
  - Pyrexia [Unknown]
  - Glycosylated haemoglobin increased [Unknown]
  - Fatigue [Unknown]
  - Quality of life decreased [Unknown]
  - Infusion related reaction [Unknown]
  - Blood pressure increased [Unknown]
  - Back pain [Recovering/Resolving]
  - Dyspnoea [Not Recovered/Not Resolved]
  - Muscle spasms [Recovered/Resolved]
  - Micturition urgency [Not Recovered/Not Resolved]
  - Pyrexia [Not Recovered/Not Resolved]
  - Chills [Not Recovered/Not Resolved]
  - Weight decreased [Not Recovered/Not Resolved]
  - Necrosis [Not Recovered/Not Resolved]
  - Vasculitis [Not Recovered/Not Resolved]
  - Depression [Unknown]
  - Sinus congestion [Recovered/Resolved]
  - Oxygen saturation decreased [Unknown]
  - Abdominal pain [Recovered/Resolved]
  - Body temperature increased [Unknown]
  - Balance disorder [Unknown]
  - Cyst [Recovered/Resolved]
  - Diarrhoea [Not Recovered/Not Resolved]
  - Chronic obstructive pulmonary disease [Unknown]

NARRATIVE: CASE EVENT DATE: 20120904
